FAERS Safety Report 24624114 (Version 1)
Quarter: 2024Q4

REPORT INFORMATION
  Report Type: Spontaneous
  Country: CN (occurrence: CN)
  Receive Date: 20241115
  Receipt Date: 20241115
  Transmission Date: 20250114
  Serious: Yes (Hospitalization, Other)
  Sender: JIANGSU HANSOH PHARMACEUTICAL
  Company Number: CN-Jiangsu Hansoh Pharmaceutical Co., Ltd-2165107

PATIENT
  Age: 55 Year
  Sex: Female
  Weight: 50 kg

DRUGS (5)
  1. PEMETREXED [Suspect]
     Active Substance: PEMETREXED
     Indication: Ovarian cancer
     Dates: start: 20240217, end: 20240217
  2. NEDAPLATIN [Suspect]
     Active Substance: NEDAPLATIN
     Dates: start: 20240217, end: 20240217
  3. AMBROXOL HYDROCHLORIDE [Concomitant]
     Active Substance: AMBROXOL HYDROCHLORIDE
     Dates: start: 20240221, end: 20240307
  4. CEFTAZIDIME [Concomitant]
     Active Substance: CEFTAZIDIME
     Dates: start: 20240221, end: 20240307
  5. Xing Bei Zhi Ke Granules [Concomitant]
     Dates: start: 20240221, end: 20240303

REACTIONS (4)
  - Myelosuppression [Recovering/Resolving]
  - Malaise [Unknown]
  - Productive cough [Unknown]
  - Cough [Unknown]

NARRATIVE: CASE EVENT DATE: 20240225
